FAERS Safety Report 20331492 (Version 1)
Quarter: 2022Q1

REPORT INFORMATION
  Report Type: Spontaneous
  Country: US (occurrence: None)
  Receive Date: 20220112
  Receipt Date: 20220112
  Transmission Date: 20220424
  Serious: Yes (Hospitalization)
  Sender: FDA-Public Use
  Company Number: None

PATIENT
  Age: 81 Year
  Sex: Female

DRUGS (16)
  1. CASIRIVIMAB\IMDEVIMAB [Suspect]
     Active Substance: CASIRIVIMAB\IMDEVIMAB
     Indication: COVID-19
     Dosage: FREQUENCY : ONCE;?
     Route: 058
     Dates: start: 20211230, end: 20211230
  2. atorvastatin (LIPITOR) [Concomitant]
  3. citalopram (CeleXA) [Concomitant]
  4. diltiazem LA (CARDIZEM LA) [Concomitant]
  5. diphenhydrAMINE-alum-mag hydroxide-simeth-lidocaine viscous sol [Concomitant]
  6. hydrALAZINE (APRESOLINE) [Concomitant]
  7. hydroCHLOROthiazide (HYDRODIURIL) [Concomitant]
  8. MOTRIN [Concomitant]
     Active Substance: IBUPROFEN
  9. JANUVIA [Concomitant]
     Active Substance: SITAGLIPTIN PHOSPHATE
  10. Lantus Solostar U-100 Insulin [Concomitant]
  11. levothyroxine (SYNTHROID) [Concomitant]
  12. lisinopril (ZESTRIL) [Concomitant]
  13. magnesium oxide (MAG-OX) [Concomitant]
  14. omeprazole (PriLOSEC) [Concomitant]
  15. ondansetron ODT (ZOFRAN-ODT) [Concomitant]
  16. rosuvastatin (CRESTOR) [Concomitant]

REACTIONS (7)
  - Cerebrovascular accident [None]
  - Sepsis [None]
  - Hypoxia [None]
  - Cerebral small vessel ischaemic disease [None]
  - Urinary tract infection [None]
  - White blood cells urine positive [None]
  - Nitrite urine present [None]

NARRATIVE: CASE EVENT DATE: 20220107
